FAERS Safety Report 24937447 (Version 2)
Quarter: 2025Q1

REPORT INFORMATION
  Report Type: Spontaneous
  Country: US (occurrence: US)
  Receive Date: 20250206
  Receipt Date: 20250212
  Transmission Date: 20250409
  Serious: No
  Sender: BRISTOL-MYERS SQUIBB COMPANY
  Company Number: US-BRISTOL-MYERS SQUIBB COMPANY-2025-016998

PATIENT
  Age: 63 Year
  Sex: Female

DRUGS (2)
  1. OPDIVO [Suspect]
     Active Substance: NIVOLUMAB
     Indication: Glioma
     Route: 042
  2. OPDIVO [Suspect]
     Active Substance: NIVOLUMAB
     Route: 042
     Dates: start: 202405

REACTIONS (10)
  - Visual impairment [Not Recovered/Not Resolved]
  - Stomatitis [Recovering/Resolving]
  - Thyroid disorder [Recovering/Resolving]
  - Onychomadesis [Recovering/Resolving]
  - Nausea [Recovered/Resolved]
  - Rash [Recovered/Resolved]
  - Loose tooth [Recovered/Resolved]
  - Optic nerve disorder [Unknown]
  - Inflammation [Unknown]
  - Off label use [Unknown]

NARRATIVE: CASE EVENT DATE: 20240101
